FAERS Safety Report 15578116 (Version 1)
Quarter: 2018Q4

REPORT INFORMATION
  Report Type: Spontaneous
  Country: US (occurrence: US)
  Receive Date: 20181029
  Receipt Date: 20181029
  Transmission Date: 20190205
  Serious: No
  Sender: FDA-Public Use
  Company Number: None

PATIENT

DRUGS (3)
  1. ESTRACE [Suspect]
     Active Substance: ESTRADIOL
  2. ESTRIOIL E3/TEST 0.05/0.05 CREAM [Suspect]
     Active Substance: ESTRIOL\TESTOSTERONE
  3. PREMARIN [Suspect]
     Active Substance: ESTROGENS, CONJUGATED
     Dates: start: 20171214, end: 20180820

REACTIONS (1)
  - Invasive ductal breast carcinoma [None]
